FAERS Safety Report 7496319-0 (Version None)
Quarter: 2011Q2

REPORT INFORMATION
  Report Type: 
  Country: None (occurrence: None)
  Receive Date: 20110513
  Receipt Date: 20110427
  Transmission Date: 20111010
  Serious: Yes (Other)
  Sender: FDA-Public Use
  Company Number: 2011SP019484

PATIENT
  Age: 73 Year
  Sex: Male

DRUGS (1)
  1. TEMOZOLOMIDE [Suspect]
     Indication: GLIOBLASTOMA
     Dosage: 75 MG/M2;QD ; 200 MG/M2;QD

REACTIONS (2)
  - PLASMABLASTIC LYMPHOMA [None]
  - CELL-MEDIATED IMMUNE DEFICIENCY [None]
